FAERS Safety Report 22066807 (Version 1)
Quarter: 2023Q1

REPORT INFORMATION
  Report Type: Report from Study
  Country: US (occurrence: US)
  Receive Date: 20230306
  Receipt Date: 20230306
  Transmission Date: 20230417
  Serious: Yes (Other)
  Sender: FDA-Public Use
  Company Number: US-BIOGEN-2023BI01191588

PATIENT
  Age: 40 Year
  Sex: Female

DRUGS (1)
  1. VUMERITY [Suspect]
     Active Substance: DIROXIMEL FUMARATE
     Indication: Multiple sclerosis
     Route: 050
     Dates: start: 202212

REACTIONS (4)
  - Blindness transient [Recovered/Resolved]
  - Vision blurred [Recovered/Resolved with Sequelae]
  - Sensation of foreign body [Recovered/Resolved with Sequelae]
  - Oropharyngeal pain [Recovered/Resolved with Sequelae]

NARRATIVE: CASE EVENT DATE: 20221201
